FAERS Safety Report 23753767 (Version 1)
Quarter: 2024Q2

REPORT INFORMATION
  Report Type: Spontaneous
  Country: US (occurrence: US)
  Receive Date: 20240417
  Receipt Date: 20240417
  Transmission Date: 20240716
  Serious: Yes (Other)
  Sender: FDA-Public Use
  Company Number: US-SUN PHARMACEUTICAL INDUSTRIES LTD-2024R1-441532

PATIENT
  Age: 63 Year
  Sex: Female

DRUGS (1)
  1. VERAPAMIL [Suspect]
     Active Substance: VERAPAMIL HYDROCHLORIDE
     Indication: Hypertension
     Dosage: 240 MILLIGRAM
     Route: 065

REACTIONS (4)
  - Toxicity to various agents [Unknown]
  - Vasoplegia syndrome [Unknown]
  - Cardiac dysfunction [Unknown]
  - Acute respiratory distress syndrome [Unknown]
